FAERS Safety Report 7440615-X (Version None)
Quarter: 2011Q2

REPORT INFORMATION
  Report Type: 
  Country: None (occurrence: None)
  Receive Date: 20110427
  Receipt Date: 20110420
  Transmission Date: 20111010
  Serious: Yes (Life-Threatening)
  Sender: FDA-Public Use
  Company Number: B0715037A

PATIENT
  Sex: Female
  Weight: 51 kg

DRUGS (3)
  1. ZOSYN [Concomitant]
     Dosage: 4MG PER DAY
     Route: 042
     Dates: start: 20071126, end: 20071126
  2. ALKERAN [Suspect]
     Indication: STEM CELL TRANSPLANT
     Dosage: 200MGM2 PER DAY
     Route: 042
     Dates: start: 20071126, end: 20071126
  3. GRAN [Concomitant]
     Dates: start: 20071203, end: 20071209

REACTIONS (1)
  - FEBRILE NEUTROPENIA [None]
